FAERS Safety Report 4331749-7 (Version None)
Quarter: 2004Q2

REPORT INFORMATION
  Report Type: 
  Country: None (occurrence: None)
  Receive Date: 20040405
  Receipt Date: 20030522
  Transmission Date: 20050107
  Serious: No
  Sender: FDA-Public Use
  Company Number: US-GLAXOSMITHKLINE-A0409389A

PATIENT
  Age: 2 Year
  Sex: Male

DRUGS (2)
  1. FLOVENT [Suspect]
     Dosage: 2PUFF TWICE PER DAY
     Route: 055
     Dates: start: 20030516
  2. ZYRTEC [Concomitant]

REACTIONS (2)
  - PRURITUS [None]
  - RASH [None]
